FAERS Safety Report 19360663 (Version 1)
Quarter: 2021Q2

REPORT INFORMATION
  Report Type: Report from Study
  Country: None (occurrence: US)
  Receive Date: 20210602
  Receipt Date: 20210602
  Transmission Date: 20210717
  Serious: No
  Sender: FDA-Public Use
  Company Number: US-MDD US OPERATIONS-MDD202009-001915

PATIENT
  Age: 75 Year
  Sex: Male

DRUGS (6)
  1. LOVASTATIN. [Concomitant]
     Active Substance: LOVASTATIN
     Dosage: NOT PROVIDED
     Dates: start: 2000
  2. OMEPRAZOLE. [Concomitant]
     Active Substance: OMEPRAZOLE
     Dosage: NOT PROVIDED
     Dates: start: 2000
  3. APOKYN [Suspect]
     Active Substance: APOMORPHINE HYDROCHLORIDE
     Indication: PARKINSON^S DISEASE
     Route: 058
     Dates: start: 20200911
  4. TOLAZAMIDE. [Concomitant]
     Active Substance: TOLAZAMIDE
     Dosage: NOT PROVIDED
     Dates: start: 2000
  5. ALLOPURINOL. [Concomitant]
     Active Substance: ALLOPURINOL
     Dosage: NOT PROVIDED
     Dates: start: 2000
  6. RASAGILINE. [Concomitant]
     Active Substance: RASAGILINE
     Dosage: NOT PROVIDED
     Dates: start: 2007

REACTIONS (2)
  - Loss of consciousness [Recovered/Resolved]
  - Blood glucose increased [Recovering/Resolving]

NARRATIVE: CASE EVENT DATE: 20200911
